FAERS Safety Report 4415243-0 (Version None)
Quarter: 2004Q3

REPORT INFORMATION
  Report Type: 
  Country: None (occurrence: None)
  Receive Date: 20040804
  Receipt Date: 20030929
  Transmission Date: 20050211
  Serious: Yes (Other)
  Sender: FDA-Public Use
  Company Number: US-MERCK-0310USA00135

PATIENT
  Age: 62 Year
  Sex: Female
  Weight: 50 kg

DRUGS (2)
  1. CYANOCOBALAMIN [Concomitant]
     Route: 065
  2. VIOXX [Suspect]
     Route: 048
     Dates: start: 19970101, end: 20020101

REACTIONS (9)
  - ANEURYSM [None]
  - CARDIAC DISORDER [None]
  - CEREBROVASCULAR ACCIDENT [None]
  - EATING DISORDER [None]
  - EMOTIONAL DISTRESS [None]
  - GASTRIC ULCER HAEMORRHAGE [None]
  - HYPERTENSION [None]
  - INFECTION [None]
  - THROMBOSIS [None]
